FAERS Safety Report 4417614-5 (Version None)
Quarter: 2004Q3

REPORT INFORMATION
  Report Type: 
  Country: None (occurrence: None)
  Receive Date: 20040803
  Receipt Date: 20040719
  Transmission Date: 20050211
  Serious: Yes (Life-Threatening, Other)
  Sender: FDA-Public Use
  Company Number: 2004-DE-02001UP

PATIENT
  Age: 76 Year
  Sex: Male

DRUGS (7)
  1. MIRAPEX [Suspect]
     Indication: PARKINSON'S DISEASE
     Dosage: 2.1 MG (0.7 MG, 3 IN 1 D) PO
     Route: 048
     Dates: start: 20031101
  2. MADOPAR (MADOPAR) [Concomitant]
  3. BENZHEXOL (TRIHEXYPHENDIYL) [Concomitant]
  4. METFORMIN HCL [Concomitant]
  5. GLICLAZIDE (GLICLAZIDE) [Concomitant]
  6. LISINOPRIL [Concomitant]
  7. CO-CODAMOL (PANADEINE CO) [Concomitant]

REACTIONS (1)
  - DEEP VEIN THROMBOSIS [None]
